FAERS Safety Report 11141847 (Version 3)
Quarter: 2015Q3

REPORT INFORMATION
  Report Type: Spontaneous
  Country: US (occurrence: US)
  Receive Date: 20150527
  Receipt Date: 20150724
  Transmission Date: 20151125
  Serious: Yes (Hospitalization, Other)
  Sender: FDA-Public Use
  Company Number: US-INCYTE CORPORATION-2015IN002249

PATIENT
  Sex: Male
  Weight: 62.13 kg

DRUGS (32)
  1. VITAMIN B12 [Concomitant]
     Active Substance: CYANOCOBALAMIN
  2. METOPROLOL [Concomitant]
     Active Substance: METOPROLOL
  3. REGLAN [Concomitant]
     Active Substance: METOCLOPRAMIDE HYDROCHLORIDE
  4. ALBUTEROL                          /00139501/ [Concomitant]
     Active Substance: ALBUTEROL
  5. JAKAFI [Suspect]
     Active Substance: RUXOLITINIB
     Dosage: 5 MG, QD
     Route: 048
     Dates: start: 20150604
  6. CYMBALTA [Concomitant]
     Active Substance: DULOXETINE HYDROCHLORIDE
  7. MAGNESIUM [Concomitant]
     Active Substance: MAGNESIUM
  8. LIPITOR [Concomitant]
     Active Substance: ATORVASTATIN CALCIUM
  9. ATARAX [Concomitant]
     Active Substance: HYDROXYZINE\HYDROXYZINE HYDROCHLORIDE
  10. FLEXERIL [Concomitant]
     Active Substance: CYCLOBENZAPRINE HYDROCHLORIDE
  11. GLUCOPHAGE [Concomitant]
     Active Substance: METFORMIN HYDROCHLORIDE
  12. LANTUS [Concomitant]
     Active Substance: INSULIN GLARGINE
  13. LOPRESSOR [Concomitant]
     Active Substance: METOPROLOL TARTRATE
  14. EFFIENT [Concomitant]
     Active Substance: PRASUGREL HYDROCHLORIDE
  15. ASPIRIN. [Concomitant]
     Active Substance: ASPIRIN
  16. NEXIUM [Concomitant]
     Active Substance: ESOMEPRAZOLE MAGNESIUM
  17. VITAMIN D                          /00107901/ [Concomitant]
     Active Substance: ERGOCALCIFEROL
  18. NORCO [Concomitant]
     Active Substance: ACETAMINOPHEN\HYDROCODONE BITARTRATE
  19. CRESTOR [Concomitant]
     Active Substance: ROSUVASTATIN CALCIUM
  20. REMERON [Concomitant]
     Active Substance: MIRTAZAPINE
  21. NOVOLOG [Concomitant]
     Active Substance: INSULIN ASPART
  22. VITAMIN C [Concomitant]
     Active Substance: ASCORBIC ACID
  23. DILAUDID [Concomitant]
     Active Substance: HYDROMORPHONE HYDROCHLORIDE
  24. COLACE [Concomitant]
     Active Substance: DOCUSATE SODIUM
  25. KEPPRA [Concomitant]
     Active Substance: LEVETIRACETAM
  26. METFORMIN [Concomitant]
     Active Substance: METFORMIN HYDROCHLORIDE
  27. KLOR-CON [Concomitant]
     Active Substance: POTASSIUM CHLORIDE
  28. JAKAFI [Suspect]
     Active Substance: RUXOLITINIB
     Indication: MYELOFIBROSIS
     Dosage: 5 MG, BID
     Route: 048
     Dates: start: 20150513
  29. FLOMAX [Concomitant]
     Active Substance: TAMSULOSIN HYDROCHLORIDE
  30. HYDROXYZINE [Concomitant]
     Active Substance: HYDROXYZINE\HYDROXYZINE HYDROCHLORIDE
  31. MVI [Concomitant]
     Active Substance: VITAMINS
  32. LASIX [Concomitant]
     Active Substance: FUROSEMIDE

REACTIONS (10)
  - Fall [Unknown]
  - Abdominal pain [Unknown]
  - Seizure [Unknown]
  - Diabetic ketoacidosis [Recovering/Resolving]
  - Weight decreased [Unknown]
  - Decreased appetite [Unknown]
  - Fatigue [Unknown]
  - Cerebral haemorrhage [Unknown]
  - Nausea [Unknown]
  - Splenomegaly [Unknown]
